FAERS Safety Report 6960700-6 (Version None)
Quarter: 2010Q3

REPORT INFORMATION
  Report Type: 
  Country: None (occurrence: None)
  Receive Date: 20100901
  Receipt Date: 20100825
  Transmission Date: 20110219
  Serious: Yes (Other)
  Sender: FDA-Public Use
  Company Number: US-ROCHE-710858

PATIENT
  Sex: Female

DRUGS (2)
  1. PEGINTERFERON ALFA-2A [Suspect]
     Indication: HEPATITIS C
     Dosage: FORM: PRE-FILLED SYRINGE, THE PATIENT WAS IN WEEK 33 OF TREATMENT.
     Route: 065
     Dates: start: 20100103
  2. RIBAVIRIN [Suspect]
     Indication: HEPATITIS C
     Dosage: THE PATIENT WAS IN WEEK 33 OF TREATMENT.
     Route: 065
     Dates: start: 20100103

REACTIONS (10)
  - ABDOMINAL PAIN UPPER [None]
  - ANAEMIA [None]
  - DECREASED APPETITE [None]
  - DYSGEUSIA [None]
  - FATIGUE [None]
  - HYPERTHYROIDISM [None]
  - OCULAR VASCULAR DISORDER [None]
  - PALPITATIONS [None]
  - THYROID DISORDER [None]
  - THYROIDITIS [None]
